FAERS Safety Report 6205803-9 (Version None)
Quarter: 2009Q2

REPORT INFORMATION
  Report Type: 
  Country: None (occurrence: None)
  Receive Date: 20090527
  Receipt Date: 20090429
  Transmission Date: 20091009
  Serious: No
  Sender: FDA-Public Use
  Company Number: US-ABBOTT-09P-163-0570639-00

PATIENT
  Sex: Female

DRUGS (4)
  1. SIMCOR [Suspect]
     Indication: BLOOD CHOLESTEROL INCREASED
     Dosage: FORM: 500/20
     Dates: start: 20090421
  2. SINGULAIR [Concomitant]
     Indication: DRUG USE FOR UNKNOWN INDICATION
  3. PREVACID [Concomitant]
     Indication: DRUG USE FOR UNKNOWN INDICATION
  4. ALLERGY SHOTS [Concomitant]
     Indication: DRUG USE FOR UNKNOWN INDICATION

REACTIONS (1)
  - DIZZINESS [None]
